FAERS Safety Report 7040104-0 (Version None)
Quarter: 2010Q4

REPORT INFORMATION
  Report Type: 
  Country: None (occurrence: None)
  Receive Date: 20101012
  Receipt Date: 20101001
  Transmission Date: 20110411
  Serious: Yes (Hospitalization)
  Sender: FDA-Public Use
  Company Number: PHHY2010JP66069

PATIENT
  Age: 5 Year
  Sex: Male

DRUGS (2)
  1. ZADITEN [Suspect]
     Indication: ASTHMA
     Route: 048
  2. ONON [Concomitant]

REACTIONS (2)
  - CONVULSION [None]
  - EPILEPSY [None]
